FAERS Safety Report 8772763 (Version 2)
Quarter: 2012Q4

REPORT INFORMATION
  Report Type: 
  Country: JP (occurrence: JP)
  Receive Date: 20120907
  Receipt Date: 20121214
  Transmission Date: 20130627
  Serious: Yes (Hospitalization, Other)
  Sender: FDA-Public Use
  Company Number: JP-009507513-1209JPN001371

PATIENT
  Age: 62 Year
  Sex: Male
  Weight: 79 kg

DRUGS (24)
  1. PEGINTRON POWDER FOR INJECTION 100MICROG [Suspect]
     Indication: CHRONIC HEPATITIS C
     Dosage: 1.5 Microgram per kilogram, qw
     Route: 058
     Dates: start: 20120522, end: 20120625
  2. PEGINTRON POWDER FOR INJECTION 100MICROG [Suspect]
     Dosage: 1.2 Microgram per kilogram, qw
     Route: 058
     Dates: start: 20120626, end: 20120723
  3. PEGINTRON POWDER FOR INJECTION 100MICROG [Suspect]
     Dosage: 1.0 Microgram per kilogram, qw
     Route: 058
     Dates: start: 20120724, end: 20120806
  4. PEGINTRON POWDER FOR INJECTION 100MICROG [Suspect]
     Dosage: 1.2 Microgram per kilogram, qw
     Route: 058
     Dates: start: 20120807, end: 20120813
  5. PEGINTRON POWDER FOR INJECTION 100MICROG [Suspect]
     Dosage: 1.5 Microgram per kilogram, UNK
     Route: 058
     Dates: start: 20120821, end: 20120917
  6. PEGINTRON POWDER FOR INJECTION 100MICROG [Suspect]
     Dosage: 1.2 Microgram per kilogram, UNK
     Route: 058
     Dates: start: 20120918, end: 20121029
  7. PEGINTRON POWDER FOR INJECTION 100MICROG [Suspect]
     Dosage: 1.5 Microgram per kilogram, UNK
     Route: 058
     Dates: start: 20121003
  8. REBETOL [Suspect]
     Indication: CHRONIC HEPATITIS C
     Dosage: 800 mg, qd
     Route: 048
     Dates: start: 20120522, end: 20120625
  9. REBETOL [Suspect]
     Dosage: 600 mg, qd
     Route: 048
     Dates: start: 20120626, end: 20120709
  10. REBETOL [Suspect]
     Dosage: 400 mg, qd
     Route: 048
     Dates: start: 20120710, end: 20120723
  11. REBETOL [Suspect]
     Dosage: 200 mg, qd
     Route: 048
     Dates: start: 20120724, end: 20120730
  12. REBETOL [Suspect]
     Dosage: 200 mg, qd
     Route: 048
     Dates: start: 20120828, end: 20121001
  13. REBETOL [Suspect]
     Dosage: 400 mg, qd
     Route: 048
     Dates: start: 20121002, end: 20121015
  14. REBETOL [Suspect]
     Dosage: 600 mg, qd
     Route: 048
     Dates: start: 20121016, end: 20121029
  15. REBETOL [Suspect]
     Dosage: 400 mg, qd
     Route: 048
     Dates: start: 20121030
  16. TELAVIC [Suspect]
     Indication: CHRONIC HEPATITIS C
     Dosage: 2250 mg, qd
     Route: 048
     Dates: start: 20120522, end: 20120709
  17. TELAVIC [Suspect]
     Dosage: 1500 mg, qd
     Route: 048
     Dates: start: 20120710, end: 20120803
  18. EXFORGE [Concomitant]
     Indication: HYPERTENSION
     Dosage: 1 DF, qd
     Route: 048
     Dates: end: 20120626
  19. ZYLORIC [Concomitant]
     Indication: HYPERURICAEMIA
     Dosage: 100 mg, qd
     Route: 048
     Dates: end: 20120523
  20. ZYLORIC [Concomitant]
     Dosage: 300 mg, qd
     Route: 048
     Dates: end: 20120730
  21. ZYLORIC [Concomitant]
     Dosage: 100 mg, qd
     Route: 048
     Dates: start: 20120731
  22. OMEPRAL [Concomitant]
     Indication: PROPHYLAXIS
     Dosage: 20 mg, qd
     Route: 048
     Dates: start: 20120522
  23. PREMINENT [Concomitant]
     Indication: HYPERTENSION
     Dosage: 1 DF, qd
     Route: 048
     Dates: start: 20120627
  24. URINORM [Concomitant]
     Indication: HYPERURICAEMIA
     Dosage: 50 mg, qd
     Route: 048

REACTIONS (3)
  - Blood creatine increased [Not Recovered/Not Resolved]
  - Haemoglobin decreased [Not Recovered/Not Resolved]
  - Malaise [Recovering/Resolving]
